FAERS Safety Report 12056826 (Version 1)
Quarter: 2016Q1

REPORT INFORMATION
  Report Type: Spontaneous
  Country: ES (occurrence: ES)
  Receive Date: 20160209
  Receipt Date: 20160209
  Transmission Date: 20160526
  Serious: Yes (Hospitalization, Other)
  Sender: FDA-Public Use
  Company Number: ES-INCYTE CORPORATION-2016IN000655

PATIENT
  Age: 7 Year
  Sex: Male

DRUGS (6)
  1. PREDNISONE. [Concomitant]
     Active Substance: PREDNISONE
     Indication: AUTOINFLAMMATORY DISEASE
     Dosage: 2.5 MG, QD
     Route: 048
     Dates: start: 20151206, end: 20151215
  2. SEPTRIN PAEDIATRIC [Concomitant]
     Indication: AUTOINFLAMMATORY DISEASE
     Dosage: 1 ML, 4 TIMES A DAY (3 WEEKS)
     Route: 048
  3. PRIVIGEN [Concomitant]
     Active Substance: HUMAN IMMUNOGLOBULIN G
     Indication: AUTOINFLAMMATORY DISEASE
     Dosage: 15 G, UNK
     Route: 042
     Dates: start: 20150602, end: 20151204
  4. JAKAFI [Suspect]
     Active Substance: RUXOLITINIB
     Indication: AUTOINFLAMMATORY DISEASE
     Dosage: 2.5 MG, BID
     Route: 048
     Dates: start: 20151201, end: 20151215
  5. JAKAFI [Suspect]
     Active Substance: RUXOLITINIB
     Dosage: 2.5 MG, BID
     Route: 048
     Dates: start: 20160104
  6. CELLCEPT [Concomitant]
     Active Substance: MYCOPHENOLATE MOFETIL\MYCOPHENOLATE MOFETIL HYDROCHLORIDE
     Indication: AUTOINFLAMMATORY DISEASE
     Route: 048

REACTIONS (5)
  - Diarrhoea [Unknown]
  - Skin lesion [Unknown]
  - Arthritis [Recovered/Resolved]
  - Off label use [Unknown]
  - Fasciitis [Recovered/Resolved]

NARRATIVE: CASE EVENT DATE: 20151206
